FAERS Safety Report 24903633 (Version 3)
Quarter: 2025Q1

REPORT INFORMATION
  Report Type: Spontaneous
  Country: SK (occurrence: SK)
  Receive Date: 20250130
  Receipt Date: 20250309
  Transmission Date: 20250409
  Serious: Yes (Hospitalization, Other)
  Sender: ROCHE
  Company Number: SK-ROCHE-10000188179

PATIENT
  Age: 74 Year
  Sex: Male

DRUGS (2)
  1. TECENTRIQ [Suspect]
     Active Substance: ATEZOLIZUMAB
     Indication: Hepatocellular carcinoma
     Dosage: LAST DOSE RECEIVED IN 16/DEC/2024 WITHOUT BEVACIZUMAB
     Route: 042
     Dates: start: 202409
  2. MVASI [Suspect]
     Active Substance: BEVACIZUMAB-AWWB
     Indication: Hepatocellular carcinoma
     Route: 065

REACTIONS (3)
  - Transient ischaemic attack [Recovered/Resolved]
  - Multiple fractures [Recovering/Resolving]
  - Disease progression [Recovering/Resolving]

NARRATIVE: CASE EVENT DATE: 20241224
